FAERS Safety Report 9688780 (Version 1)
Quarter: 2013Q4

REPORT INFORMATION
  Report Type: Spontaneous
  Country: IT (occurrence: IT)
  Receive Date: 20131114
  Receipt Date: 20131114
  Transmission Date: 20140711
  Serious: Yes (Life-Threatening)
  Sender: FDA-Public Use
  Company Number: IT-BAYER-2013-137831

PATIENT
  Age: 76 Year
  Sex: Male

DRUGS (8)
  1. CARDIOASPIRIN [Suspect]
     Indication: PLATELET AGGREGATION INHIBITION
     Dosage: DAILY DOSE 100 MG
     Route: 048
     Dates: end: 20131102
  2. CLOPIDOGREL [Suspect]
     Indication: PLATELET AGGREGATION INHIBITION
     Dosage: 75 MG, DAILY
     Route: 048
     Dates: end: 20131102
  3. SIMVASTATIN [Concomitant]
     Dosage: UNK
  4. LISINOPRIL ACTAVIS [Concomitant]
     Dosage: UNK
  5. PANTOPRAZOLE [Concomitant]
     Dosage: UNK
  6. ONBREZ [Concomitant]
     Dosage: UNK
  7. SPIRIVA [Concomitant]
     Dosage: UNK
  8. LASIX [Concomitant]
     Indication: BLOOD PRESSURE INCREASED
     Route: 042

REACTIONS (2)
  - Cerebral haemorrhage [Unknown]
  - Coma [Unknown]
